FAERS Safety Report 10935454 (Version 2)
Quarter: 2015Q2

REPORT INFORMATION
  Report Type: Spontaneous
  Country: US (occurrence: US)
  Receive Date: 20150320
  Receipt Date: 20150422
  Transmission Date: 20150821
  Serious: Yes (Other)
  Sender: FDA-Public Use
  Company Number: US-GLAXOSMITHKLINE-US2015036158

PATIENT
  Age: 67 Year
  Sex: Female

DRUGS (2)
  1. ADVAIR DISKUS [Suspect]
     Active Substance: FLUTICASONE PROPIONATE\SALMETEROL XINAFOATE
     Indication: EMPHYSEMA
     Dosage: 250/50MCG, UNKNOWN DOSING
     Route: 065
     Dates: start: 2010
  2. ADVAIR DISKUS [Suspect]
     Active Substance: FLUTICASONE PROPIONATE\SALMETEROL XINAFOATE
     Indication: CHRONIC OBSTRUCTIVE PULMONARY DISEASE
     Dosage: 500/50
     Route: 055
     Dates: start: 2005

REACTIONS (6)
  - Insomnia [Recovered/Resolved]
  - Dyspnoea [Recovering/Resolving]
  - Hot flush [Recovered/Resolved]
  - Deafness transitory [Recovered/Resolved]
  - Drug ineffective [Recovering/Resolving]
  - Product quality issue [Unknown]

NARRATIVE: CASE EVENT DATE: 20150304
